FAERS Safety Report 13576193 (Version 1)
Quarter: 2017Q2

REPORT INFORMATION
  Report Type: Spontaneous
  Country: US (occurrence: US)
  Receive Date: 20170524
  Receipt Date: 20170524
  Transmission Date: 20170830
  Serious: No
  Sender: FDA-Public Use
  Company Number: None

PATIENT
  Age: 70 Year
  Sex: Female
  Weight: 93.52 kg

DRUGS (11)
  1. WOMENS REGUVENATOR PLUS [Concomitant]
  2. ST JOSEPH 81MG [Concomitant]
  3. V D [Concomitant]
  4. COQ-10 WITH RED YEAST [Concomitant]
  5. DEFINITY [Suspect]
     Active Substance: PERFLUTREN
     Indication: ECHOCARDIOGRAM
     Dates: start: 20170424, end: 20170424
  6. CITRACEL [Concomitant]
  7. LOVASTATIN. [Concomitant]
     Active Substance: LOVASTATIN
  8. MIRALAX [Concomitant]
     Active Substance: POLYETHYLENE GLYCOL 3350
  9. ENDAPAMIDE [Concomitant]
  10. V E [Concomitant]
  11. HAIR SKIN + NAILS [Concomitant]

REACTIONS (5)
  - Chest pain [None]
  - Joint stiffness [None]
  - Arthralgia [None]
  - Muscle strain [None]
  - Dyspnoea [None]

NARRATIVE: CASE EVENT DATE: 20170424
